FAERS Safety Report 22609733 (Version 1)
Quarter: 2023Q2

REPORT INFORMATION
  Report Type: Spontaneous
  Country: CN (occurrence: CN)
  Receive Date: 20230616
  Receipt Date: 20230616
  Transmission Date: 20230722
  Serious: Yes (Hospitalization, Other)
  Sender: FDA-Public Use
  Company Number: CN-009507513-2306CHN006278

PATIENT
  Age: 85 Year
  Sex: Female
  Weight: 47.5 kg

DRUGS (1)
  1. CILASTATIN SODIUM\IMIPENEM [Suspect]
     Active Substance: CILASTATIN SODIUM\IMIPENEM
     Indication: Anti-infective therapy
     Dosage: 1 G, TID, IV DRIP
     Route: 041
     Dates: start: 20230602, end: 20230606

REACTIONS (3)
  - Mental disorder [Unknown]
  - Dysphoria [Unknown]
  - Hallucination [Unknown]

NARRATIVE: CASE EVENT DATE: 20230606
